FAERS Safety Report 8543841-1 (Version None)
Quarter: 2012Q3

REPORT INFORMATION
  Report Type: 
  Country: None (occurrence: None)
  Receive Date: 20120727
  Receipt Date: 20120719
  Transmission Date: 20120928
  Serious: Yes (Hospitalization)
  Sender: FDA-Public Use
  Company Number: FR-B.I. PHARMACEUTICALS,INC./RIDGEFIELD-2012-FF-00966FF

PATIENT
  Sex: Male

DRUGS (2)
  1. NICARDIPINE HCL [Concomitant]
     Indication: HYPERTENSION
  2. MICARDIS [Suspect]
     Indication: HYPERTENSION
     Route: 048
     Dates: end: 20110201

REACTIONS (7)
  - YELLOW SKIN [None]
  - BRONCHITIS [None]
  - ERYTHEMA [None]
  - BOWEN'S DISEASE [None]
  - LUNG NEOPLASM MALIGNANT [None]
  - ECZEMA [None]
  - ARTHRALGIA [None]
